FAERS Safety Report 9409549 (Version 1)
Quarter: 2013Q2

REPORT INFORMATION
  Report Type: Spontaneous
  Country: US (occurrence: US)
  Receive Date: 20130424
  Receipt Date: 20130424
  Transmission Date: 20140414
  Serious: Yes (Other)
  Sender: FDA-Public Use
  Company Number: 2013P1004824

PATIENT
  Age: 43 Year
  Sex: Female

DRUGS (2)
  1. INFUMORPH [Suspect]
     Indication: PAIN
  2. BUPIVACAINE [Suspect]
     Indication: PAIN

REACTIONS (1)
  - Decubitus ulcer [None]
